FAERS Safety Report 17535908 (Version 1)
Quarter: 2020Q1

REPORT INFORMATION
  Report Type: Spontaneous
  Country: US (occurrence: US)
  Receive Date: 20200313
  Receipt Date: 20200313
  Transmission Date: 20200409
  Serious: Yes (Life-Threatening, Hospitalization, Other)
  Sender: FDA-Public Use
  Company Number: US-GLENMARK PHARMACEUTICALS-2018GMK046549

PATIENT
  Sex: Female

DRUGS (13)
  1. HYDROCORTISONE BUTYRATE. [Suspect]
     Active Substance: HYDROCORTISONE BUTYRATE
     Indication: B PRECURSOR TYPE ACUTE LEUKAEMIA
     Dosage: UNK
     Route: 037
  2. METHOTREXATE. [Suspect]
     Active Substance: METHOTREXATE
     Indication: B PRECURSOR TYPE ACUTE LEUKAEMIA
     Dosage: UNK
     Route: 042
  3. LESTAURTINIB [Suspect]
     Active Substance: LESTAURTINIB
     Indication: B PRECURSOR TYPE ACUTE LEUKAEMIA
     Dosage: UNK
     Route: 065
  4. GRANULOCYTE COLONY STIMULATING FACTOR [Suspect]
     Active Substance: GRANULOCYTE COLONY-STIMULATING FACTOR NOS
     Indication: B PRECURSOR TYPE ACUTE LEUKAEMIA
     Dosage: UNK
     Route: 065
  5. CYTARABINE. [Suspect]
     Active Substance: CYTARABINE
     Dosage: UNK
     Route: 065
  6. DAUNORUBICIN [Suspect]
     Active Substance: DAUNORUBICIN
     Indication: B PRECURSOR TYPE ACUTE LEUKAEMIA
     Dosage: UNK
     Route: 065
  7. ETOPOSIDE. [Suspect]
     Active Substance: ETOPOSIDE
     Indication: B PRECURSOR TYPE ACUTE LEUKAEMIA
     Dosage: UNK
     Route: 065
  8. VINCRISTINE [Suspect]
     Active Substance: VINCRISTINE
     Indication: B PRECURSOR TYPE ACUTE LEUKAEMIA
     Dosage: UNK
     Route: 065
  9. METHYLPREDNISOLONE. [Suspect]
     Active Substance: METHYLPREDNISOLONE
     Indication: B PRECURSOR TYPE ACUTE LEUKAEMIA
     Dosage: UNK
     Route: 065
  10. CYTARABINE. [Suspect]
     Active Substance: CYTARABINE
     Indication: B PRECURSOR TYPE ACUTE LEUKAEMIA
     Dosage: UNK
     Route: 037
  11. METHOTREXATE. [Suspect]
     Active Substance: METHOTREXATE
     Dosage: UNK
     Route: 037
  12. ASPARAGINASE [Suspect]
     Active Substance: ASPARAGINASE
     Indication: B PRECURSOR TYPE ACUTE LEUKAEMIA
     Dosage: UNK
     Route: 065
  13. CYCLOPHOSPHAMIDE. [Suspect]
     Active Substance: CYCLOPHOSPHAMIDE
     Indication: B PRECURSOR TYPE ACUTE LEUKAEMIA
     Dosage: UNK
     Route: 065

REACTIONS (23)
  - Corona virus infection [Recovered/Resolved]
  - Bronchiolitis [Recovered/Resolved]
  - Vomiting [Recovering/Resolving]
  - Conjunctivitis [Recovered/Resolved]
  - Septic shock [Recovered/Resolved]
  - Enterococcal infection [Recovered/Resolved]
  - Clostridium difficile colitis [Recovered/Resolved]
  - Staphylococcal infection [Recovered/Resolved]
  - Skin necrosis [Recovered/Resolved]
  - Hypogammaglobulinaemia [Recovering/Resolving]
  - Lymphopenia [Recovered/Resolved]
  - Febrile neutropenia [Recovering/Resolving]
  - Otitis externa [Unknown]
  - Hypertension [Unknown]
  - Lymphopenia [Unknown]
  - Graft versus host disease [Recovering/Resolving]
  - Diarrhoea [Recovering/Resolving]
  - Candida infection [Recovered/Resolved]
  - Klebsiella infection [Recovered/Resolved]
  - Immunodeficiency [Recovered/Resolved]
  - Pulmonary oedema [Recovering/Resolving]
  - Feeding intolerance [Unknown]
  - Erythema multiforme [Recovered/Resolved]
